FAERS Safety Report 11236070 (Version 1)
Quarter: 2015Q3

REPORT INFORMATION
  Report Type: Spontaneous
  Country: US (occurrence: US)
  Receive Date: 20150702
  Receipt Date: 20150702
  Transmission Date: 20151125
  Serious: No
  Sender: FDA-Public Use
  Company Number: US-TAKEDA-2015TUS003766

PATIENT
  Sex: Female

DRUGS (1)
  1. CONTRAVE [Suspect]
     Active Substance: BUPROPION HYDROCHLORIDE\NALTREXONE HYDROCHLORIDE
     Indication: PRODUCT USED FOR UNKNOWN INDICATION
     Dosage: TAKE AS DIRECTED PER ESCALATION SCHEDULE
     Route: 048
     Dates: start: 20150316, end: 20150317

REACTIONS (4)
  - Dyspnoea [Recovering/Resolving]
  - Palpitations [Recovering/Resolving]
  - Drug hypersensitivity [Recovering/Resolving]
  - Dizziness [Recovering/Resolving]

NARRATIVE: CASE EVENT DATE: 20150316
